FAERS Safety Report 4394341-4 (Version None)
Quarter: 2004Q3

REPORT INFORMATION
  Report Type: 
  Country: None (occurrence: None)
  Receive Date: 20040712
  Receipt Date: 20040701
  Transmission Date: 20050211
  Serious: Yes (Hospitalization)
  Sender: FDA-Public Use
  Company Number: ES-BRISTOL-MYERS SQUIBB COMPANY-12629689

PATIENT
  Age: 26 Year
  Sex: Female

DRUGS (6)
  1. DEPRAX [Suspect]
     Route: 048
     Dates: start: 20031111
  2. DEPAKENE [Suspect]
     Route: 048
  3. TRILEPTAL [Suspect]
     Route: 048
  4. RISPERDAL [Suspect]
     Route: 048
  5. SEROQUEL [Suspect]
     Route: 048
  6. SEROXAT [Suspect]
     Route: 048

REACTIONS (2)
  - SLEEP APNOEA SYNDROME [None]
  - SOMNOLENCE [None]
